FAERS Safety Report 13770343 (Version 1)
Quarter: 2017Q3

REPORT INFORMATION
  Report Type: Spontaneous
  Country: US (occurrence: US)
  Receive Date: 20170719
  Receipt Date: 20170719
  Transmission Date: 20171127
  Serious: Yes (Other)
  Sender: FDA-Public Use
  Company Number: US-TEVA-788976USA

PATIENT
  Sex: Female

DRUGS (1)
  1. AZITHROMYCIN ANHYDROUS. [Suspect]
     Active Substance: AZITHROMYCIN ANHYDROUS
     Indication: TOOTH ABSCESS
     Route: 065
     Dates: start: 20170712, end: 20170713

REACTIONS (2)
  - Faeces soft [Unknown]
  - Haematochezia [Unknown]

NARRATIVE: CASE EVENT DATE: 20170712
